FAERS Safety Report 14983042 (Version 1)
Quarter: 2018Q2

REPORT INFORMATION
  Report Type: Spontaneous
  Country: US (occurrence: US)
  Receive Date: 20180515
  Receipt Date: 20180515
  Transmission Date: 20180711
  Serious: Yes (Life-Threatening, Hospitalization, Disabling)
  Sender: FDA-Public Use
  Company Number: None

PATIENT
  Age: 52 Year
  Sex: Female
  Weight: 117.93 kg

DRUGS (6)
  1. GENERIC CIPRO [Suspect]
     Active Substance: CIPROFLOXACIN HYDROCHLORIDE
  2. NORCO [Concomitant]
     Active Substance: ACETAMINOPHEN\HYDROCODONE BITARTRATE
  3. CIPRO [Suspect]
     Active Substance: CIPROFLOXACIN HYDROCHLORIDE
     Indication: SINUSITIS
     Route: 048
     Dates: start: 2002, end: 2009
  4. AETENOL [Concomitant]
  5. VENTOLON HFA [Concomitant]
  6. IPROPROMIUM BROMIDE [Concomitant]

REACTIONS (10)
  - Blindness [None]
  - Condition aggravated [None]
  - Neuropathy peripheral [None]
  - Motor dysfunction [None]
  - Hypertension [None]
  - Stress [None]
  - Limb mass [None]
  - Mobility decreased [None]
  - Anger [None]
  - Influenza like illness [None]

NARRATIVE: CASE EVENT DATE: 20040110
